FAERS Safety Report 5891634-6 (Version None)
Quarter: 2008Q3

REPORT INFORMATION
  Report Type: 
  Country: None (occurrence: None)
  Receive Date: 20080908
  Receipt Date: 20080711
  Transmission Date: 20090109
  Serious: No
  Sender: FDA-Public Use
  Company Number: 002#2#2008-00335

PATIENT
  Age: 44 Year
  Sex: Female
  Weight: 102.0593 kg

DRUGS (9)
  1. NEUPRO [Suspect]
     Indication: RESTLESS LEGS SYNDROME
     Dosage: 4MG/24H, 1 IN 1 D, TRANSDERMAL : 2MG/24H, 1 IN 1 D, TRANSDERMAL
     Route: 062
     Dates: start: 20071125, end: 20071221
  2. NEUPRO [Suspect]
     Indication: RESTLESS LEGS SYNDROME
     Dosage: 4MG/24H, 1 IN 1 D, TRANSDERMAL : 2MG/24H, 1 IN 1 D, TRANSDERMAL
     Route: 062
     Dates: start: 20071220, end: 20080424
  3. REQUIP [Concomitant]
  4. SYNTHROID [Concomitant]
  5. TYLENOL (CAPLET) [Concomitant]
  6. MOTRIN [Concomitant]
  7. CITALOPRAM HYDROBROMIDE [Concomitant]
  8. VITAMIN D [Concomitant]
  9. VITAMIN B-12 [Concomitant]

REACTIONS (6)
  - APPLICATION SITE ERYTHEMA [None]
  - APPLICATION SITE PRURITUS [None]
  - APPLICATION SITE REACTION [None]
  - GAMBLING [None]
  - OFF LABEL USE [None]
  - URTICARIA [None]
